FAERS Safety Report 4349659-8 (Version None)
Quarter: 2004Q1

REPORT INFORMATION
  Report Type: 
  Country: None (occurrence: None)
  Receive Date: 20040329
  Receipt Date: 20040123
  Transmission Date: 20041129
  Serious: No
  Sender: FDA-Public Use
  Company Number: USA040157196

PATIENT
  Age: 9 Year
  Sex: Male
  Weight: 21 kg

DRUGS (1)
  1. STRATTERA [Suspect]
     Indication: ATTENTION DEFICIT/HYPERACTIVITY DISORDER
     Dosage: 10 MG/DAY
     Dates: start: 20030101

REACTIONS (7)
  - ABDOMINAL PAIN UPPER [None]
  - DECREASED APPETITE [None]
  - FATIGUE [None]
  - MOOD SWINGS [None]
  - PRESCRIBED OVERDOSE [None]
  - SKIN DISCOLOURATION [None]
  - WEIGHT DECREASED [None]
